FAERS Safety Report 6127615-7 (Version None)
Quarter: 2009Q1

REPORT INFORMATION
  Report Type: 
  Country: None (occurrence: None)
  Receive Date: 20090323
  Receipt Date: 20090311
  Transmission Date: 20090719
  Serious: Yes (Hospitalization, Other)
  Sender: FDA-Public Use
  Company Number: US-ROCHE-577338

PATIENT
  Sex: Male
  Weight: 108.9 kg

DRUGS (3)
  1. ACCUTANE [Suspect]
     Route: 048
     Dates: start: 20030324, end: 20030409
  2. ACCUTANE [Suspect]
     Route: 048
     Dates: start: 20030410, end: 20030908
  3. TAZORAC [Concomitant]
     Dates: start: 20030904

REACTIONS (11)
  - ANAEMIA [None]
  - ARTHROPATHY [None]
  - BLOOD CHOLESTEROL INCREASED [None]
  - BLOOD TRIGLYCERIDES INCREASED [None]
  - CLOSTRIDIUM DIFFICILE COLITIS [None]
  - COLITIS ULCERATIVE [None]
  - DEPRESSION [None]
  - HYPERTROPHIC ANAL PAPILLA [None]
  - INFLAMMATORY BOWEL DISEASE [None]
  - LIP DRY [None]
  - PROCTOCOLITIS [None]
